FAERS Safety Report 8465500-6 (Version None)
Quarter: 2012Q2

REPORT INFORMATION
  Report Type: 
  Country: None (occurrence: None)
  Receive Date: 20120626
  Receipt Date: 20120618
  Transmission Date: 20120825
  Serious: Yes (Hospitalization, Other)
  Sender: FDA-Public Use
  Company Number: US-BAYER-2012-062066

PATIENT
  Age: 49 Year
  Sex: Female
  Weight: 105.67 kg

DRUGS (5)
  1. YASMIN [Suspect]
     Indication: DYSFUNCTIONAL UTERINE BLEEDING
  2. CYMBALTA [Concomitant]
     Indication: DEPRESSION
     Dosage: 30 MG, QD
     Route: 048
  3. HYDROCHLOROTHIAZIDE [Concomitant]
     Indication: HYPERTENSION
     Dosage: 20/125 QD
     Route: 048
  4. YASMIN [Suspect]
     Indication: MENOMETRORRHAGIA
  5. IBUPROFEN [Concomitant]
     Dosage: 600 MG, Q6 (EVERY 6 HOURS) AS NEEDED.
     Dates: start: 20070717

REACTIONS (2)
  - CHOLELITHIASIS [None]
  - PULMONARY EMBOLISM [None]
